FAERS Safety Report 18264047 (Version 3)
Quarter: 2020Q3

REPORT INFORMATION
  Report Type: Spontaneous
  Country: US (occurrence: US)
  Receive Date: 20200914
  Receipt Date: 20200921
  Transmission Date: 20201103
  Serious: No
  Sender: FDA-Public Use
  Company Number: US-PFIZER INC-2020248112

PATIENT
  Age: 63 Year
  Sex: Male
  Weight: 106.59 kg

DRUGS (4)
  1. CAVERJECT [Suspect]
     Active Substance: ALPROSTADIL
     Indication: ERECTILE DYSFUNCTION
     Dosage: 30 UG, AS NEEDED (30 MCG INJECTION AS NEEDED)
  2. CAVERJECT [Suspect]
     Active Substance: ALPROSTADIL
     Dosage: 5 UG
  3. CAVERJECT [Suspect]
     Active Substance: ALPROSTADIL
     Dosage: 40 UG, AS NEEDED (40 MCG BY INJECTION AS NEEDED)
     Dates: start: 2019
  4. CAVERJECT [Suspect]
     Active Substance: ALPROSTADIL
     Dosage: 10 UG

REACTIONS (1)
  - Therapeutic product effect incomplete [Unknown]
